FAERS Safety Report 9904270 (Version 1)
Quarter: 2014Q1

REPORT INFORMATION
  Report Type: Spontaneous
  Country: US (occurrence: US)
  Receive Date: 20140218
  Receipt Date: 20140218
  Transmission Date: 20141002
  Serious: No
  Sender: FDA-Public Use
  Company Number: US-009507513-1402USA007660

PATIENT
  Sex: Male

DRUGS (1)
  1. INVANZ [Suspect]

REACTIONS (1)
  - Mental status changes [Recovered/Resolved]
